FAERS Safety Report 7985573-4 (Version None)
Quarter: 2011Q4

REPORT INFORMATION
  Report Type: 
  Country: None (occurrence: None)
  Receive Date: 20111216
  Receipt Date: 20111205
  Transmission Date: 20120403
  Serious: Yes (Other)
  Sender: FDA-Public Use
  Company Number: US-PFIZER INC-2011278550

PATIENT
  Age: 73 Year
  Sex: Male

DRUGS (2)
  1. BUPRENORPHINE [Suspect]
  2. MORPHINE SULFATE [Suspect]

REACTIONS (1)
  - DRUG ABUSE [None]
